FAERS Safety Report 9471475 (Version 1)
Quarter: 2013Q3

REPORT INFORMATION
  Report Type: Spontaneous
  Country: GB (occurrence: GB)
  Receive Date: 20130822
  Receipt Date: 20130822
  Transmission Date: 20140515
  Serious: Yes (Other)
  Sender: FDA-Public Use
  Company Number: GB-TEVA-426621ISR

PATIENT
  Age: 78 Year
  Sex: Female

DRUGS (4)
  1. AMLODIPINE [Suspect]
     Indication: PRODUCT USED FOR UNKNOWN INDICATION
  2. AMLODIPINE [Suspect]
  3. METFORMIN [Concomitant]
  4. GLICLAZIDE [Concomitant]

REACTIONS (3)
  - Rash [Recovering/Resolving]
  - Joint swelling [Unknown]
  - Nightmare [Unknown]
